FAERS Safety Report 13269395 (Version 1)
Quarter: 2017Q1

REPORT INFORMATION
  Report Type: Report from Study
  Country: None (occurrence: US)
  Receive Date: 20170224
  Receipt Date: 20170224
  Transmission Date: 20170428
  Serious: Yes (Other)
  Sender: FDA-Public Use
  Company Number: US-ABBVIE-17K-163-1840838-00

PATIENT
  Sex: Male

DRUGS (1)
  1. HUMIRA [Suspect]
     Active Substance: ADALIMUMAB
     Indication: RHEUMATOID ARTHRITIS
     Route: 058

REACTIONS (5)
  - Spinal osteoarthritis [Recovering/Resolving]
  - Bursitis [Recovering/Resolving]
  - Rotator cuff syndrome [Recovering/Resolving]
  - Arterial occlusive disease [Recovering/Resolving]
  - Neck surgery [Recovering/Resolving]
